FAERS Safety Report 20108449 (Version 1)
Quarter: 2021Q4

REPORT INFORMATION
  Report Type: Spontaneous
  Country: US (occurrence: None)
  Receive Date: 20211123
  Receipt Date: 20211123
  Transmission Date: 20220303
  Serious: Yes (Life-Threatening, Disabling, Other)
  Sender: FDA-Public Use
  Company Number: None

PATIENT
  Age: 51 Year
  Sex: Female
  Weight: 140.85 kg

DRUGS (1)
  1. PRAVASTATIN [Suspect]
     Active Substance: PRAVASTATIN
     Indication: Blood cholesterol
     Dosage: OTHER QUANTITY : 1 TABLET(S);?FREQUENCY : AT BEDTIME;?
     Route: 048

REACTIONS (9)
  - Seizure [None]
  - Impaired driving ability [None]
  - Loss of consciousness [None]
  - Dysstasia [None]
  - Hypoaesthesia oral [None]
  - Dysphagia [None]
  - Choking [None]
  - Muscle twitching [None]
  - Eye movement disorder [None]

NARRATIVE: CASE EVENT DATE: 20201123
